FAERS Safety Report 18321433 (Version 1)
Quarter: 2020Q3

REPORT INFORMATION
  Report Type: Spontaneous
  Country: US (occurrence: US)
  Receive Date: 20200928
  Receipt Date: 20200928
  Transmission Date: 20201103
  Serious: Yes (Death, Hospitalization, Other)
  Sender: FDA-Public Use
  Company Number: US-PURDUE-USA-2020-0167815

PATIENT
  Age: 55 Year
  Sex: Male

DRUGS (12)
  1. MORPHINE SULFATE EXTENDED?RELEASE TABLETS (RHODES 74?769, 74?862) [Suspect]
     Active Substance: MORPHINE SULFATE
     Indication: DENTAL CARE
     Dosage: UNK
     Route: 048
  2. HYDROMORPHONE TABLETS [Suspect]
     Active Substance: HYDROMORPHONE
     Indication: DENTAL CARE
     Dosage: UNK
     Route: 048
  3. OXYIR [Suspect]
     Active Substance: OXYCODONE HYDROCHLORIDE
     Indication: DENTAL CARE
     Route: 065
  4. MS CONTIN [Suspect]
     Active Substance: MORPHINE SULFATE
     Indication: DENTAL CARE
     Dosage: UNK
     Route: 048
  5. RYZOLT [Suspect]
     Active Substance: TRAMADOL HYDROCHLORIDE
     Indication: DENTAL CARE
     Dosage: UNK
     Route: 065
  6. BUPRENORPHINE TRANSDERMAL PATCH (SIMILAR TO NDA 21?306) [Suspect]
     Active Substance: BUPRENORPHINE
     Indication: DENTAL CARE
     Dosage: UNK
     Route: 062
  7. OXYCONTIN [Suspect]
     Active Substance: OXYCODONE HYDROCHLORIDE
     Indication: DENTAL CARE
     Dosage: UNK
     Route: 048
  8. OXYCODONE HCL CR TABLETS (SIMILAR TO NDA 22?272) [Suspect]
     Active Substance: OXYCODONE HYDROCHLORIDE
     Indication: DENTAL CARE
     Dosage: UNK
     Route: 048
  9. OXYCODONE/ ACETAMINOPHEN TABLETS [Suspect]
     Active Substance: ACETAMINOPHEN\OXYCODONE HYDROCHLORIDE
     Indication: DENTAL CARE
     Dosage: UNK
     Route: 048
  10. DILAUDID [Suspect]
     Active Substance: HYDROMORPHONE HYDROCHLORIDE
     Indication: DENTAL CARE
     Dosage: UNK
     Route: 048
  11. ADDERALL [Concomitant]
     Active Substance: AMPHETAMINE ASPARTATE\AMPHETAMINE SULFATE\DEXTROAMPHETAMINE SACCHARATE\DEXTROAMPHETAMINE SULFATE
     Indication: ATTENTION DEFICIT HYPERACTIVITY DISORDER
     Dosage: UNK
     Route: 065
     Dates: start: 2011
  12. BUTRANS [Suspect]
     Active Substance: BUPRENORPHINE
     Indication: DENTAL CARE
     Dosage: UNK
     Route: 062

REACTIONS (7)
  - Nephrectomy [Unknown]
  - Drug dependence [Unknown]
  - Renal cancer [Unknown]
  - Substance abuse [Fatal]
  - Attention deficit hyperactivity disorder [Unknown]
  - Dental care [Unknown]
  - Alcoholism [Fatal]

NARRATIVE: CASE EVENT DATE: 201708
